FAERS Safety Report 20207619 (Version 1)
Quarter: 2021Q4

REPORT INFORMATION
  Report Type: Other
  Country: US (occurrence: None)
  Receive Date: 20211220
  Receipt Date: 20211220
  Transmission Date: 20220303
  Serious: Yes (Hospitalization)
  Sender: FDA-Public Use
  Company Number: US-ROCHE-2976309

PATIENT
  Sex: Female

DRUGS (1)
  1. OCREVUS [Suspect]
     Active Substance: OCRELIZUMAB
     Indication: Multiple sclerosis
     Dosage: DATE OF TREATMENT: 05/JUN/2021,
     Route: 065
     Dates: start: 20181117

REACTIONS (2)
  - Muscular weakness [Not Recovered/Not Resolved]
  - COVID-19 [Not Recovered/Not Resolved]
